FAERS Safety Report 7382583-5 (Version None)
Quarter: 2011Q1

REPORT INFORMATION
  Report Type: 
  Country: None (occurrence: None)
  Receive Date: 20110329
  Receipt Date: 20110309
  Transmission Date: 20110831
  Serious: Yes (Other)
  Sender: FDA-Public Use
  Company Number: US-BAYER-2011-009754

PATIENT
  Sex: Male

DRUGS (6)
  1. LIPITOR [Concomitant]
     Dosage: 40 MG, HS
     Route: 048
  2. TRASYLOL [Suspect]
     Indication: AORTIC VALVE REPLACEMENT
     Dosage: UNK
     Route: 042
  3. COUMADIN [Concomitant]
     Dosage: 5 MG, QD
     Route: 048
  4. ATENOLOL [Concomitant]
     Dosage: 25 MG, QD
     Route: 048
  5. ASPIRIN [Concomitant]
     Dosage: 81 MG, QD
     Route: 048
  6. PREVACID [Concomitant]
     Dosage: UNK UNK, PRN
     Route: 048

REACTIONS (13)
  - RENAL FAILURE [None]
  - ANXIETY [None]
  - ANHEDONIA [None]
  - EMOTIONAL DISTRESS [None]
  - FEAR OF DEATH [None]
  - UNEVALUABLE EVENT [None]
  - INJURY [None]
  - NERVOUSNESS [None]
  - RENAL INJURY [None]
  - DEPRESSION [None]
  - MULTI-ORGAN FAILURE [None]
  - FEAR [None]
  - PAIN [None]
